FAERS Safety Report 13167961 (Version 1)
Quarter: 2017Q1

REPORT INFORMATION
  Report Type: Spontaneous
  Country: MX (occurrence: MX)
  Receive Date: 20170131
  Receipt Date: 20170131
  Transmission Date: 20170428
  Serious: Yes (Hospitalization)
  Sender: FDA-Public Use
  Company Number: MX-CELGENEUS-MEX-2017015756

PATIENT
  Sex: Female

DRUGS (2)
  1. REVLIMID [Suspect]
     Active Substance: LENALIDOMIDE
     Indication: 5Q MINUS SYNDROME
     Dosage: 25 MILLIGRAM
     Route: 048
     Dates: start: 20161223, end: 20170102
  2. REVLIMID [Suspect]
     Active Substance: LENALIDOMIDE
     Dosage: 6 MILLIGRAM
     Route: 048
     Dates: start: 20170103

REACTIONS (4)
  - Medication error [Unknown]
  - Acute abdomen [Recovered/Resolved]
  - Thrombocytopenia [Recovered/Resolved]
  - Neutropenia [Recovered/Resolved]

NARRATIVE: CASE EVENT DATE: 20161223
